FAERS Safety Report 25319674 (Version 4)
Quarter: 2025Q4

REPORT INFORMATION
  Report Type: Report from Study
  Country: US (occurrence: US)
  Receive Date: 20250515
  Receipt Date: 20251107
  Transmission Date: 20260118
  Serious: Yes (Other)
  Sender: OTSUKA
  Company Number: US-MMM-Otsuka-FHT72EBQ

PATIENT
  Sex: Female

DRUGS (6)
  1. TOLVAPTAN [Suspect]
     Active Substance: TOLVAPTAN
     Indication: Congenital cystic kidney disease
     Dosage: 45 MG, QD (EVERY MORNING)
     Dates: start: 20240731, end: 202506
  2. TOLVAPTAN [Suspect]
     Active Substance: TOLVAPTAN
     Dosage: 15 MG, QD (8 H LATER EVERY DAY)
     Dates: start: 20240731, end: 202506
  3. LEVOTHYROXINE [Concomitant]
     Active Substance: LEVOTHYROXINE
     Indication: Product used for unknown indication
     Dosage: 50 ?G
     Route: 065
  4. OZEMPIC [Concomitant]
     Active Substance: SEMAGLUTIDE
     Indication: Product used for unknown indication
     Dosage: UNK (2MG/3ML)
     Route: 065
  5. TOLVAPTAN [Concomitant]
     Active Substance: TOLVAPTAN
     Indication: Product used for unknown indication
     Dosage: 45 MG
     Route: 065
  6. TOLVAPTAN [Concomitant]
     Active Substance: TOLVAPTAN
     Dosage: 15 MG
     Route: 065

REACTIONS (8)
  - Syncope [Unknown]
  - Confusional state [Unknown]
  - Depression [Unknown]
  - Dry skin [Unknown]
  - Asthenia [Unknown]
  - Dry mouth [Unknown]
  - Fatigue [Unknown]
  - Thirst [Unknown]
